FAERS Safety Report 10388275 (Version 1)
Quarter: 2014Q3

REPORT INFORMATION
  Report Type: Spontaneous
  Country: US (occurrence: US)
  Receive Date: 20140815
  Receipt Date: 20140815
  Transmission Date: 20150326
  Serious: No
  Sender: FDA-Public Use
  Company Number: US-BAYER-2014-122370

PATIENT
  Age: 84 Year
  Sex: Female
  Weight: 75 kg

DRUGS (2)
  1. ONE A DAY WOMENS VITACRAVES GUMMIES [Suspect]
     Active Substance: VITAMINS
     Dosage: 2 DF, QD
     Route: 048
     Dates: start: 20140808, end: 20140811
  2. ALEVE [Suspect]
     Active Substance: NAPROXEN SODIUM
     Indication: ANALGESIC THERAPY
     Dosage: 2 DF, ONCE
     Route: 048
     Dates: start: 201407, end: 201407

REACTIONS (2)
  - Drug ineffective [None]
  - Nausea [Recovered/Resolved]

NARRATIVE: CASE EVENT DATE: 201407
